FAERS Safety Report 18260457 (Version 1)
Quarter: 2020Q3

REPORT INFORMATION
  Report Type: Spontaneous
  Country: GB (occurrence: GB)
  Receive Date: 20200914
  Receipt Date: 20200914
  Transmission Date: 20201103
  Serious: Yes (Other)
  Sender: FDA-Public Use
  Company Number: GB-TEVA-2020-GB-1825787

PATIENT
  Age: 70 Year
  Sex: Male
  Weight: 73.47 kg

DRUGS (5)
  1. BRISTOL LABS RAMIPRIL [Concomitant]
     Active Substance: RAMIPRIL
  2. CLOPIDOGREL HYDROGEN SULFATE [Suspect]
     Active Substance: CLOPIDOGREL BISULFATE
     Dosage: 75 MG
     Route: 048
     Dates: start: 2018
  3. LERCANIDIPINE [Concomitant]
     Active Substance: LERCANIDIPINE
  4. GENERICS UK LANSOPRAZOLE [Concomitant]
     Dates: start: 2019
  5. LIPITOR [Concomitant]
     Active Substance: ATORVASTATIN CALCIUM

REACTIONS (2)
  - Haematospermia [Unknown]
  - Genital discolouration [Unknown]

NARRATIVE: CASE EVENT DATE: 2019
